FAERS Safety Report 17557576 (Version 1)
Quarter: 2020Q1

REPORT INFORMATION
  Report Type: Other
  Country: FI (occurrence: FI)
  Receive Date: 20200318
  Receipt Date: 20200318
  Transmission Date: 20200409
  Serious: No
  Sender: FDA-Public Use
  Company Number: FI-EMERGENT BIOSOLUTIONS,-E2B_00003985

PATIENT
  Age: 19 Year
  Sex: Male

DRUGS (7)
  1. VIVOTIF [Suspect]
     Active Substance: SALMONELLA TYPHI TY21A LIVE ANTIGEN
     Indication: IMMUNISATION
     Dates: start: 20191009, end: 2019
  2. DUKORAL [Suspect]
     Active Substance: CHOLERA VACCINE
     Dosage: UNK
     Route: 048
     Dates: start: 20191015, end: 201910
  3. VIVOTIF [Suspect]
     Active Substance: SALMONELLA TYPHI TY21A LIVE ANTIGEN
     Dates: start: 20191013
  4. DUKORAL [Suspect]
     Active Substance: CHOLERA VACCINE
     Indication: IMMUNISATION
     Dosage: UNK
     Route: 048
     Dates: start: 201910, end: 20191015
  5. VIVOTIF [Suspect]
     Active Substance: SALMONELLA TYPHI TY21A LIVE ANTIGEN
     Dates: start: 20191011
  6. IXIARO [Suspect]
     Active Substance: JAPANESE ENCEPHALITIS VIRUS STRAIN NAKAYAMA-NIH ANTIGEN (FORMALDEHYDE INACTIVATED)
     Indication: JAPANESE ENCEPHALITIS IMMUNISATION
     Dosage: UNK
     Dates: start: 20191003, end: 20191003
  7. IXIARO [Suspect]
     Active Substance: JAPANESE ENCEPHALITIS VIRUS STRAIN NAKAYAMA-NIH ANTIGEN (FORMALDEHYDE INACTIVATED)
     Dosage: UNK
     Dates: start: 20191104

REACTIONS (7)
  - Insomnia [Recovered/Resolved]
  - Lymphadenopathy [Recovered/Resolved]
  - Lymphadenitis [Recovered/Resolved]
  - C-reactive protein increased [Recovered/Resolved]
  - Nausea [Recovered/Resolved]
  - Vomiting [Recovered/Resolved]
  - Abdominal pain lower [Recovered/Resolved]

NARRATIVE: CASE EVENT DATE: 20191016
